FAERS Safety Report 7090156-7 (Version None)
Quarter: 2010Q4

REPORT INFORMATION
  Report Type: 
  Country: None (occurrence: None)
  Receive Date: 20101104
  Receipt Date: 20101104
  Transmission Date: 20110411
  Serious: Yes (Other)
  Sender: FDA-Public Use
  Company Number: None

PATIENT
  Sex: Male
  Weight: 103.2387 kg

DRUGS (1)
  1. VENLAFAXINE [Suspect]
     Dosage: 150 MG ONE QD PO
     Route: 048

REACTIONS (3)
  - DEPRESSION [None]
  - NIGHTMARE [None]
  - NONSPECIFIC REACTION [None]
